FAERS Safety Report 6655228-7 (Version None)
Quarter: 2010Q1

REPORT INFORMATION
  Report Type: 
  Country: None (occurrence: None)
  Receive Date: 20100329
  Receipt Date: 20100316
  Transmission Date: 20100710
  Serious: Yes (Hospitalization)
  Sender: FDA-Public Use
  Company Number: US-ELI_LILLY_AND_COMPANY-US201003006105

PATIENT
  Sex: Female

DRUGS (7)
  1. ADCIRCA [Suspect]
     Indication: PULMONARY ARTERIAL HYPERTENSION
     Dosage: 1 D/F, UNK
     Dates: start: 20100101, end: 20100308
  2. DILTIAZEM HCL [Concomitant]
  3. CARDIZEM [Concomitant]
     Dates: end: 20100201
  4. COUMADIN [Concomitant]
     Dosage: 5 MG, DAILY (1/D)
  5. POTASSIUM [Concomitant]
     Dosage: 20 MEQ, DAILY (1/D)
  6. LASIX [Concomitant]
  7. METOLAZONE [Concomitant]

REACTIONS (3)
  - HEART RATE IRREGULAR [None]
  - MALAISE [None]
  - MUSCLE SPASMS [None]
